FAERS Safety Report 16480564 (Version 1)
Quarter: 2019Q2

REPORT INFORMATION
  Report Type: Spontaneous
  Country: US (occurrence: US)
  Receive Date: 20190626
  Receipt Date: 20190626
  Transmission Date: 20190711
  Serious: No
  Sender: FDA-Public Use
  Company Number: US-PURACAP PHARMACEUTICAL LLC-2019EPC00141

PATIENT
  Age: 45 Year
  Sex: Male

DRUGS (1)
  1. IBUPROFEN. [Suspect]
     Active Substance: IBUPROFEN
     Indication: ANALGESIC THERAPY
     Dosage: 400 MG, ONCE (1-2 SOFTGELS EVERY 4 - 6 HOURS AS SYMPTOMS PERSIST)
     Route: 048
     Dates: start: 201904, end: 201904

REACTIONS (3)
  - Dizziness [Recovered/Resolved]
  - Anxiety [Recovered/Resolved]
  - Nausea [Recovered/Resolved]

NARRATIVE: CASE EVENT DATE: 201904
